FAERS Safety Report 9804976 (Version 2)
Quarter: 2014Q1

REPORT INFORMATION
  Report Type: Spontaneous
  Country: PE (occurrence: PE)
  Receive Date: 20140109
  Receipt Date: 20140109
  Transmission Date: 20141002
  Serious: Yes (Hospitalization, Other)
  Sender: FDA-Public Use
  Company Number: PE-AMGEN-PERSP2013090983

PATIENT
  Age: 54 Year
  Sex: Male

DRUGS (3)
  1. ENBREL [Suspect]
     Indication: PRODUCT USED FOR UNKNOWN INDICATION
     Dosage: UNK
     Route: 058
     Dates: end: 20131209
  2. METHOTREXATE [Concomitant]
     Dosage: UNK
     Route: 065
  3. COLCHICINE [Concomitant]
     Dosage: UNK
     Route: 065

REACTIONS (2)
  - Tumour necrosis factor receptor-associated periodic syndrome [Recovered/Resolved]
  - Drug ineffective [Recovered/Resolved]
